FAERS Safety Report 5858567-2 (Version None)
Quarter: 2008Q3

REPORT INFORMATION
  Report Type: 
  Country: None (occurrence: None)
  Receive Date: 20080826
  Receipt Date: 20080814
  Transmission Date: 20090109
  Serious: Yes (Hospitalization)
  Sender: FDA-Public Use
  Company Number: IT-PFIZER INC-2008068597

PATIENT
  Sex: Female

DRUGS (1)
  1. UNASYN [Suspect]
     Indication: SURGERY
     Route: 042
     Dates: start: 20080805, end: 20080805

REACTIONS (1)
  - LARYNGOSPASM [None]
